FAERS Safety Report 8488327-8 (Version None)
Quarter: 2012Q3

REPORT INFORMATION
  Report Type: 
  Country: None (occurrence: None)
  Receive Date: 20120705
  Receipt Date: 20120626
  Transmission Date: 20120928
  Serious: Yes (Other)
  Sender: FDA-Public Use
  Company Number: CA-JNJFOC-20120407372

PATIENT
  Sex: Female
  Weight: 82 kg

DRUGS (1)
  1. REMICADE [Suspect]
     Indication: CROHN'S DISEASE
     Dosage: 0,2,6 AND 8 WEEKS
     Route: 042
     Dates: start: 20120405

REACTIONS (3)
  - MATERNAL EXPOSURE DURING PREGNANCY [None]
  - DYSPNOEA [None]
  - PREMATURE LABOUR [None]
